FAERS Safety Report 9537314 (Version 5)
Quarter: 2014Q1

REPORT INFORMATION
  Report Type: Spontaneous
  Country: IT (occurrence: IT)
  Receive Date: 20130919
  Receipt Date: 20140205
  Transmission Date: 20141002
  Serious: Yes (Hospitalization)
  Sender: FDA-Public Use
  Company Number: IT-VERTEX PHARMACEUTICALS INC-2013-009716

PATIENT
  Age: 49 Year
  Sex: Male
  Weight: 80 kg

DRUGS (8)
  1. INCIVO [Suspect]
     Indication: HEPATIC CIRRHOSIS
     Dosage: UNK
     Route: 065
  2. INCIVO [Suspect]
     Indication: HEPATITIS C
     Dosage: 1125 MG, BID
     Route: 065
     Dates: start: 20130717, end: 20130920
  3. RIBAVIRIN [Suspect]
     Indication: PRODUCT USED FOR UNKNOWN INDICATION
     Dosage: 600 MG, BID
  4. INTERFERON [Suspect]
     Indication: PRODUCT USED FOR UNKNOWN INDICATION
     Dosage: 180 ?G, UNK
     Route: 065
     Dates: start: 20130717, end: 20130920
  5. ATAZANAVIR [Suspect]
     Indication: HIV INFECTION
     Dosage: 200 MG, BID
  6. RALTEGRAVIR [Suspect]
     Indication: HIV INFECTION
     Dosage: 400 MG, BID
  7. LAMIVUDINE [Suspect]
     Indication: HIV INFECTION
     Dosage: 300 MG, QD
  8. BETA BLOCKERS, NOS [Concomitant]
     Dates: end: 20131030

REACTIONS (6)
  - Haematemesis [Unknown]
  - Encephalopathy [Unknown]
  - Gastrointestinal haemorrhage [Unknown]
  - Anaemia [Unknown]
  - Off label use [Unknown]
  - No therapeutic response [Unknown]
